FAERS Safety Report 25045526 (Version 2)
Quarter: 2025Q1

REPORT INFORMATION
  Report Type: Spontaneous
  Country: DE (occurrence: DE)
  Receive Date: 20250306
  Receipt Date: 20250314
  Transmission Date: 20250409
  Serious: Yes (Hospitalization)
  Sender: REGENERON
  Company Number: DE-BAYER-2025A027484

PATIENT
  Age: 32 Year
  Sex: Female

DRUGS (4)
  1. EYLEA [Suspect]
     Active Substance: AFLIBERCEPT
     Indication: Diabetic retinal oedema
     Route: 031
     Dates: start: 202104
  2. EYLEA [Suspect]
     Active Substance: AFLIBERCEPT
     Dates: start: 20250127, end: 20250127
  3. TELMISARTAN [Suspect]
     Active Substance: TELMISARTAN
     Indication: Product used for unknown indication
     Dates: start: 20210427
  4. FIASP [Concomitant]
     Active Substance: INSULIN ASPART
     Indication: Diabetes mellitus
     Dates: start: 200301

REACTIONS (5)
  - Blindness [Not Recovered/Not Resolved]
  - Visual field defect [Unknown]
  - Visual impairment [Not Recovered/Not Resolved]
  - Eye disorder [Unknown]
  - Xanthopsia [Unknown]

NARRATIVE: CASE EVENT DATE: 20250127
